FAERS Safety Report 5845044-8 (Version None)
Quarter: 2008Q3

REPORT INFORMATION
  Report Type: 
  Country: None (occurrence: None)
  Receive Date: 20080813
  Receipt Date: 20080813
  Transmission Date: 20090109
  Serious: Yes (Life-Threatening, Hospitalization, Disabling)
  Sender: FDA-Public Use
  Company Number: None

PATIENT
  Age: 43 Year
  Sex: Male
  Weight: 72.5755 kg

DRUGS (1)
  1. BENICAR [Suspect]
     Indication: HYPERTENSION
     Dosage: ONCE DAILY
     Dates: start: 20041114, end: 20050101

REACTIONS (2)
  - CARDIAC PACEMAKER INSERTION [None]
  - LOSS OF CONSCIOUSNESS [None]
